FAERS Safety Report 5121423-1 (Version None)
Quarter: 2006Q4

REPORT INFORMATION
  Report Type: 
  Country: None (occurrence: None)
  Receive Date: 20061002
  Receipt Date: 20060917
  Transmission Date: 20070319
  Serious: Yes (Life-Threatening)
  Sender: FDA-Public Use
  Company Number: HQWYE945920SEP06

PATIENT
  Sex: Male

DRUGS (4)
  1. EFFEXOR XR [Suspect]
     Indication: ANXIETY
     Dosage: 150 MG 1X PER 1 DAY, ORAL  CAPSULE
     Route: 048
  2. EFFEXOR XR [Suspect]
     Indication: DEPRESSION
     Dosage: 150 MG 1X PER 1 DAY, ORAL  CAPSULE
     Route: 048
  3. ADDERALL 10 [Suspect]
     Dosage: 20 MG, ORAL
     Route: 048
  4. RITALIN [Suspect]
     Dosage: SEE IMAGE
     Route: 048

REACTIONS (3)
  - ARRHYTHMIA [None]
  - BLOOD PRESSURE INCREASED [None]
  - HEART RATE INCREASED [None]
